FAERS Safety Report 9017116 (Version 2)
Quarter: 2013Q2

REPORT INFORMATION
  Report Type: Report from Study
  Country: FR (occurrence: FR)
  Receive Date: 20130117
  Receipt Date: 20130418
  Transmission Date: 20140414
  Serious: Yes (Death)
  Sender: FDA-Public Use
  Company Number: FR-CELGENEUS-056-21880-13010938

PATIENT
  Age: 63 Year
  Sex: Male
  Weight: 52 kg

DRUGS (7)
  1. REVLIMID [Suspect]
     Indication: PLASMA CELL MYELOMA
     Dosage: 25 MILLIGRAM
     Route: 048
     Dates: start: 20110923, end: 20111013
  2. REVLIMID [Suspect]
     Dosage: 25 MILLIGRAM
     Route: 048
     Dates: start: 20120508, end: 20120528
  3. REVLIMID [Suspect]
     Dosage: 25 MILLIGRAM
     Route: 048
     Dates: start: 20120605, end: 20120729
  4. DEXAMETHASONE [Suspect]
     Indication: PLASMA CELL MYELOMA
     Dosage: TOTAL MONTHLY DOSE
     Route: 048
     Dates: start: 20110923, end: 20111014
  5. DEXAMETHASONE [Suspect]
     Dosage: TOTAL MONTHLY DOSE
     Route: 048
     Dates: start: 20111220, end: 20120110
  6. DEXAMETHASONE [Suspect]
     Route: 048
     Dates: start: 20120605, end: 20120729
  7. ASPIRINE [Concomitant]
     Indication: THROMBOSIS PROPHYLAXIS
     Route: 065

REACTIONS (1)
  - Hepatocellular carcinoma [Fatal]
